FAERS Safety Report 15934985 (Version 1)
Quarter: 2019Q1

REPORT INFORMATION
  Report Type: Report from Study
  Country: BE (occurrence: BE)
  Receive Date: 20190207
  Receipt Date: 20190207
  Transmission Date: 20190417
  Serious: Yes (Other)
  Sender: FDA-Public Use
  Company Number: BE-SHIRE-BE201900060

PATIENT

DRUGS (2)
  1. ADVATE [Suspect]
     Active Substance: ANTIHEMOPHILIC FACTOR, HUMAN RECOMBINANT
     Indication: FACTOR VIII DEFICIENCY
     Dosage: 2000 INTERNATIONAL UNIT,
     Route: 042
  2. ADVATE [Suspect]
     Active Substance: ANTIHEMOPHILIC FACTOR, HUMAN RECOMBINANT
     Dosage: 3000 INTERNATIONAL UNIT,
     Route: 065

REACTIONS (1)
  - Haemarthrosis [Recovered/Resolved]

NARRATIVE: CASE EVENT DATE: 20190102
